FAERS Safety Report 14822064 (Version 1)
Quarter: 2018Q2

REPORT INFORMATION
  Report Type: Report from Study
  Country: US (occurrence: US)
  Receive Date: 20180427
  Receipt Date: 20180427
  Transmission Date: 20180711
  Serious: Yes (Death, Other)
  Sender: FDA-Public Use
  Company Number: US-ASTRAZENECA-2017SE97453

PATIENT
  Age: 28963 Day
  Sex: Female

DRUGS (4)
  1. LYNPARZA [Suspect]
     Active Substance: OLAPARIB
     Indication: ENDOMETRIAL CANCER
     Route: 048
     Dates: start: 20170912
  2. LYNPARZA [Suspect]
     Active Substance: OLAPARIB
     Indication: UTERINE CANCER
     Route: 048
     Dates: start: 20170912
  3. LYNPARZA [Suspect]
     Active Substance: OLAPARIB
     Indication: UTERINE CANCER
     Route: 048
     Dates: start: 20170917
  4. LYNPARZA [Suspect]
     Active Substance: OLAPARIB
     Indication: ENDOMETRIAL CANCER
     Route: 048
     Dates: start: 20170917

REACTIONS (12)
  - Death [Fatal]
  - Cough [Not Recovered/Not Resolved]
  - Nausea [Not Recovered/Not Resolved]
  - Off label use [Not Recovered/Not Resolved]
  - Fatigue [Not Recovered/Not Resolved]
  - Chest pain [Not Recovered/Not Resolved]
  - Lung neoplasm malignant [Unknown]
  - Chest discomfort [Not Recovered/Not Resolved]
  - Product use in unapproved indication [Not Recovered/Not Resolved]
  - Dyspepsia [Not Recovered/Not Resolved]
  - Malignant neoplasm progression [Not Recovered/Not Resolved]
  - Diarrhoea [Not Recovered/Not Resolved]

NARRATIVE: CASE EVENT DATE: 20170912
